FAERS Safety Report 6997992-3 (Version None)
Quarter: 2010Q3

REPORT INFORMATION
  Report Type: 
  Country: None (occurrence: None)
  Receive Date: 20100920
  Receipt Date: 20070720
  Transmission Date: 20110219
  Serious: Yes (Other)
  Sender: FDA-Public Use
  Company Number: US-ASTRAZENECA-2006UW24525

PATIENT
  Age: 15199 Day
  Sex: Male
  Weight: 119.7 kg

DRUGS (12)
  1. SEROQUEL [Suspect]
     Indication: DEPRESSION
     Route: 048
     Dates: start: 20000101, end: 20001001
  2. SEROQUEL [Suspect]
     Indication: ANXIETY
     Route: 048
     Dates: start: 20000101, end: 20001001
  3. SEROQUEL [Suspect]
     Dosage: 100-300 MG
     Route: 048
     Dates: start: 20020528
  4. SEROQUEL [Suspect]
     Dosage: 100-300 MG
     Route: 048
     Dates: start: 20020528
  5. MARIJUANA [Concomitant]
  6. COCAINE [Concomitant]
  7. CELEXA [Concomitant]
     Route: 048
     Dates: start: 20020101
  8. PRILOSEC [Concomitant]
     Route: 048
     Dates: start: 20000101
  9. WELLBUTRIN SR [Concomitant]
     Dosage: 150-300 MG
     Route: 048
     Dates: start: 20000101
  10. HYDROCHLOROTHIAZIDE [Concomitant]
     Route: 048
     Dates: start: 20020101
  11. TIAZAC [Concomitant]
     Dosage: 180-360 MG
     Route: 048
     Dates: start: 20020101
  12. CLARINEX [Concomitant]
     Route: 048
     Dates: start: 20020101

REACTIONS (4)
  - DIABETES MELLITUS [None]
  - DIABETIC KETOACIDOSIS [None]
  - PANCREATITIS [None]
  - PANCREATITIS ACUTE [None]
